FAERS Safety Report 12690235 (Version 6)
Quarter: 2017Q2

REPORT INFORMATION
  Report Type: Spontaneous
  Country: US (occurrence: US)
  Receive Date: 20160826
  Receipt Date: 20170418
  Transmission Date: 20170830
  Serious: Yes (Hospitalization)
  Sender: FDA-Public Use
  Company Number: US-ACTELION-A-US2016-141296

PATIENT
  Age: 55 Year
  Sex: Male
  Weight: 97.52 kg

DRUGS (4)
  1. VELETRI [Suspect]
     Active Substance: EPOPROSTENOL
     Indication: PULMONARY ARTERIAL HYPERTENSION
     Dosage: 19.2 NG/KG, PER MIN
     Route: 042
  2. VELETRI [Suspect]
     Active Substance: EPOPROSTENOL
     Dosage: UNK
     Route: 042
     Dates: start: 20160301
  3. UPTRAVI [Concomitant]
     Active Substance: SELEXIPAG
  4. ELIQUIS [Concomitant]
     Active Substance: APIXABAN

REACTIONS (12)
  - Diarrhoea [Unknown]
  - Ascites [Unknown]
  - Device related infection [Unknown]
  - Therapy non-responder [Unknown]
  - Right ventricular failure [Unknown]
  - Fluid overload [Unknown]
  - Cardiac failure [Unknown]
  - Catheter site erythema [Unknown]
  - Flatulence [Unknown]
  - Chest pain [Unknown]
  - Catheter site discharge [Unknown]
  - Medical device change [Unknown]
